FAERS Safety Report 4987457-2 (Version None)
Quarter: 2006Q2

REPORT INFORMATION
  Report Type: 
  Country: None (occurrence: None)
  Receive Date: 20060501
  Receipt Date: 20051003
  Transmission Date: 20061013
  Serious: Yes (Hospitalization, Disabling, Other)
  Sender: FDA-Public Use
  Company Number: US-MERCK-0510USA02852

PATIENT
  Sex: Male
  Weight: 75 kg

DRUGS (4)
  1. VIOXX [Suspect]
     Indication: PAIN
     Route: 048
     Dates: start: 20020101, end: 20030320
  2. VIOXX [Suspect]
     Indication: DISCOMFORT
     Route: 048
     Dates: start: 20020101, end: 20030320
  3. TYLENOL (CAPLET) [Concomitant]
     Route: 065
  4. ASPIRIN [Concomitant]
     Route: 065

REACTIONS (10)
  - CARDIOVASCULAR DISORDER [None]
  - CARPAL TUNNEL SYNDROME [None]
  - CEREBRAL DISORDER [None]
  - CHEST PAIN [None]
  - COMA [None]
  - FACE INJURY [None]
  - HEART RATE IRREGULAR [None]
  - LUNG DISORDER [None]
  - PULSE ABSENT [None]
  - RENAL DISORDER [None]
